FAERS Safety Report 11242058 (Version 1)
Quarter: 2015Q3

REPORT INFORMATION
  Report Type: Report from Study
  Country: US (occurrence: US)
  Receive Date: 20150706
  Receipt Date: 20150706
  Transmission Date: 20151125
  Serious: Yes (Other)
  Sender: FDA-Public Use
  Company Number: PHEH2015US008341

PATIENT
  Sex: Female
  Weight: 50 kg

DRUGS (2)
  1. AMPYRA [Suspect]
     Active Substance: DALFAMPRIDINE
     Indication: GAIT DISTURBANCE
     Dosage: UNK
     Route: 065
  2. GILENYA [Suspect]
     Active Substance: FINGOLIMOD HYDROCHLORIDE
     Indication: MULTIPLE SCLEROSIS
     Dosage: 0.5 MG, QD
     Route: 048
     Dates: start: 20130416

REACTIONS (15)
  - Visual acuity reduced [Unknown]
  - Cognitive disorder [Unknown]
  - Balance disorder [Unknown]
  - Arthralgia [Not Recovered/Not Resolved]
  - Vitamin D decreased [Unknown]
  - Muscular weakness [Unknown]
  - Stress [Unknown]
  - Secondary progressive multiple sclerosis [Unknown]
  - Gait disturbance [Unknown]
  - Diplopia [Recovered/Resolved]
  - Mean arterial pressure decreased [Unknown]
  - Fatigue [Unknown]
  - Relapsing-remitting multiple sclerosis [Recovered/Resolved]
  - Ataxia [Unknown]
  - Blood pressure decreased [Unknown]
